FAERS Safety Report 24810726 (Version 1)
Quarter: 2025Q1

REPORT INFORMATION
  Report Type: Spontaneous
  Country: US (occurrence: None)
  Receive Date: 20250104
  Receipt Date: 20250104
  Transmission Date: 20250408
  Serious: Yes (Other)
  Sender: FDA-CTU
  Company Number: None

PATIENT
  Age: 73 Year
  Sex: Female
  Weight: 72.9 kg

DRUGS (9)
  1. RECLAST [Suspect]
     Active Substance: ZOLEDRONIC ACID
     Indication: Osteoporosis
     Route: 058
     Dates: start: 20241125
  2. LOSARTAN [Suspect]
     Active Substance: LOSARTAN
  3. AMBIEN [Concomitant]
     Active Substance: ZOLPIDEM TARTRATE
  4. UNSPECIFIED INGREDIENT [Concomitant]
     Active Substance: UNSPECIFIED INGREDIENT
  5. CALCIUM [Concomitant]
     Active Substance: CALCIUM
  6. VITAMIN D [Concomitant]
     Active Substance: VITAMIN D NOS
  7. HERBALS\TURMERIC [Concomitant]
     Active Substance: HERBALS\TURMERIC
  8. ZINC [Concomitant]
     Active Substance: ZINC
  9. HERBALS [Concomitant]
     Active Substance: HERBALS

REACTIONS (9)
  - Chills [None]
  - Pyrexia [None]
  - Neck pain [None]
  - Back pain [None]
  - Arthralgia [None]
  - Arthralgia [None]
  - Decreased appetite [None]
  - Blood pressure decreased [None]
  - Mobility decreased [None]

NARRATIVE: CASE EVENT DATE: 20241125
